FAERS Safety Report 8496536-7 (Version None)
Quarter: 2012Q3

REPORT INFORMATION
  Report Type: 
  Country: None (occurrence: None)
  Receive Date: 20120709
  Receipt Date: 20120627
  Transmission Date: 20120928
  Serious: Yes (Other)
  Sender: FDA-Public Use
  Company Number: US-ELI_LILLY_AND_COMPANY-US201206009684

PATIENT
  Age: 37 Year
  Sex: Male
  Weight: 86.168 kg

DRUGS (6)
  1. NEURONTIN                               /USA/ [Concomitant]
  2. HUMALOG [Suspect]
     Dosage: UNK UNK, PRN
     Dates: start: 20040101
  3. LIPITOR [Concomitant]
  4. HUMALOG [Suspect]
     Indication: TYPE 1 DIABETES MELLITUS
     Dosage: UNK, UNKNOWN
  5. ALAPRIL [Concomitant]
  6. HUMALOG [Suspect]

REACTIONS (7)
  - BLOOD GLUCOSE INCREASED [None]
  - DIZZINESS [None]
  - VISUAL ACUITY REDUCED [None]
  - RETINAL HAEMORRHAGE [None]
  - INCORRECT DOSE ADMINISTERED [None]
  - BLOOD GLUCOSE DECREASED [None]
  - INJECTION SITE PAIN [None]
